FAERS Safety Report 4524401-6 (Version None)
Quarter: 2004Q4

REPORT INFORMATION
  Report Type: 
  Country: None (occurrence: None)
  Receive Date: 20041123
  Receipt Date: 20040401
  Transmission Date: 20050328
  Serious: Yes (Death, Life-Threatening)
  Sender: FDA-Public Use
  Company Number: NSADSS2000002035

PATIENT
  Age: 3 Month
  Sex: Female
  Weight: 5.6 kg

DRUGS (4)
  1. PROPULSID [Suspect]
     Indication: DYSPEPSIA
     Dosage: 0.6 MG, 4 IN 1 DAY
     Dates: start: 19980901, end: 19981001
  2. PROPULSID [Suspect]
     Indication: GASTROOESOPHAGEAL REFLUX DISEASE
     Dosage: 0.6 MG, 4 IN 1 DAY
     Dates: start: 19980901, end: 19981001
  3. PHENOBARBITAL (PHENOBARBITAL) ELIXIR [Concomitant]
  4. ZANTAC [Concomitant]

REACTIONS (4)
  - CARDIAC ARREST [None]
  - DYSPNOEA [None]
  - TONIC CONVULSION [None]
  - VOMITING [None]
